FAERS Safety Report 8812440 (Version 1)
Quarter: 2012Q4

REPORT INFORMATION
  Report Type: Report from Study
  Country: SN (occurrence: SN)
  Receive Date: 20120927
  Receipt Date: 20120927
  Transmission Date: 20130627
  Serious: Yes (Other)
  Sender: FDA-Public Use
  Company Number: SN-ABBOTT-12P-138-0981253-00

PATIENT
  Age: 34 Year
  Sex: Female

DRUGS (4)
  1. RITONAVIR [Suspect]
     Indication: HIV INFECTION
     Dosage: Taken at conception
     Route: 048
     Dates: start: 20101210
  2. KALETRA [Suspect]
     Indication: HIV INFECTION
     Dosage: 4 tab/caps, taken at conception
     Route: 048
     Dates: start: 20101210
  3. TRUVADA [Concomitant]
     Indication: HIV INFECTION
     Dosage: 1 tab/caps daily, taken at conception
     Route: 048
     Dates: start: 20101210
  4. PREZISTA [Concomitant]
     Indication: HIV INFECTION
     Dosage: Taken at conception
     Route: 048
     Dates: start: 20101210

REACTIONS (1)
  - Abortion spontaneous [Unknown]
